FAERS Safety Report 8535018-0 (Version None)
Quarter: 2012Q3

REPORT INFORMATION
  Report Type: 
  Country: None (occurrence: None)
  Receive Date: 20120724
  Receipt Date: 20120717
  Transmission Date: 20120928
  Serious: Yes (Other)
  Sender: FDA-Public Use
  Company Number: US-PFIZER INC-2012136309

PATIENT
  Sex: Female
  Weight: 73.923 kg

DRUGS (4)
  1. ZOLOFT [Suspect]
     Indication: ANXIETY
     Dosage: 100MG DAILY
  2. ZOLOFT [Suspect]
     Indication: DEPRESSION
  3. XANAX [Concomitant]
     Indication: ANXIETY
     Dosage: UNK
  4. SINGULAIR [Concomitant]
     Indication: ASTHMA
     Dosage: 10MG DAILY

REACTIONS (4)
  - ANXIETY [None]
  - DRUG INEFFECTIVE [None]
  - STRESS [None]
  - BLOOD CHOLESTEROL INCREASED [None]
